FAERS Safety Report 5807333-2 (Version None)
Quarter: 2008Q3

REPORT INFORMATION
  Report Type: 
  Country: None (occurrence: None)
  Receive Date: 20080711
  Receipt Date: 20080630
  Transmission Date: 20090109
  Serious: Yes (Hospitalization)
  Sender: FDA-Public Use
  Company Number: FR-ELI_LILLY_AND_COMPANY-FR200803003673

PATIENT
  Age: 73 Year
  Sex: Female

DRUGS (6)
  1. FORTEO [Suspect]
     Indication: OSTEOPOROSIS
     Dosage: 20 UG, DAILY (1/D)
     Route: 058
     Dates: start: 20071117, end: 20071207
  2. LEVOTHYROX [Concomitant]
     Dosage: UNK, UNKNOWN
     Route: 065
  3. TOPALGIC [Concomitant]
     Dosage: UNK, UNKNOWN
     Route: 065
  4. CORTANCYL [Concomitant]
     Indication: POLYMYALGIA RHEUMATICA
     Dosage: 40 MG, DAILY (1/D)
     Route: 048
     Dates: start: 20071117
  5. CACIT [Concomitant]
     Dosage: 1 G, DAILY (1/D)
     Route: 065
     Dates: start: 20060101
  6. UN-ALFA [Concomitant]
     Dosage: 1.5 MG, DAILY (1/D)
     Route: 065
     Dates: start: 20060101, end: 20071206

REACTIONS (3)
  - ASTHENIA [None]
  - HYPERCALCAEMIA [None]
  - RENAL FAILURE [None]
